FAERS Safety Report 8625579-5 (Version None)
Quarter: 2012Q3

REPORT INFORMATION
  Report Type: 
  Country: None (occurrence: None)
  Receive Date: 20120827
  Receipt Date: 20120813
  Transmission Date: 20120928
  Serious: Yes (Other)
  Sender: FDA-Public Use
  Company Number: FR-MYLANLABS-2012S1016852

PATIENT
  Age: 55 Year
  Sex: Male

DRUGS (3)
  1. CEFTAZIDIME [Concomitant]
     Indication: LUNG DISORDER
     Route: 065
  2. NICARDIPINE HCL [Suspect]
     Indication: HYPERTENSION
     Dosage: 4 MG/HOUR
     Route: 042
  3. CIPROFLOXACIN [Concomitant]
     Indication: LUNG DISORDER
     Route: 065

REACTIONS (1)
  - HYPOXIA [None]
